FAERS Safety Report 8000178-7 (Version None)
Quarter: 2011Q4

REPORT INFORMATION
  Report Type: 
  Country: None (occurrence: None)
  Receive Date: 20111220
  Receipt Date: 20111220
  Transmission Date: 20120403
  Serious: Yes (Hospitalization)
  Sender: FDA-Public Use
  Company Number: None

PATIENT
  Sex: Male
  Weight: 78.9259 kg

DRUGS (1)
  1. ARALAST [Suspect]
     Indication: ALPHA-1 ANTI-TRYPSIN DEFICIENCY
     Dosage: 60 MG PER KG IV WEEKLY
     Route: 042
     Dates: start: 20061030

REACTIONS (3)
  - THROMBOSIS [None]
  - ABDOMINAL PAIN [None]
  - LIVER DISORDER [None]
